FAERS Safety Report 6538758-8 (Version None)
Quarter: 2010Q1

REPORT INFORMATION
  Report Type: 
  Country: None (occurrence: None)
  Receive Date: 20100114
  Receipt Date: 20100114
  Transmission Date: 20100710
  Serious: Yes (Other)
  Sender: FDA-Public Use
  Company Number: None

PATIENT
  Sex: Female

DRUGS (2)
  1. DIVALPROEX SODIUM [Suspect]
     Indication: MOOD SWINGS
     Dosage: TK 1 TWICE A DAY PO TK 1/2 TAB
     Route: 048
     Dates: start: 20091221, end: 20091223
  2. DIVALPROEX SODIUM [Suspect]
     Indication: MOOD SWINGS
     Dosage: TK 1 TWICE A DAY PO TK 1/2 TAB
     Route: 048
     Dates: start: 20091226, end: 20091226

REACTIONS (4)
  - ACTIVITIES OF DAILY LIVING IMPAIRED [None]
  - AMNESIA [None]
  - CEREBROVASCULAR ACCIDENT [None]
  - LOSS OF CONSCIOUSNESS [None]
